FAERS Safety Report 6865479-4 (Version None)
Quarter: 2010Q3

REPORT INFORMATION
  Report Type: 
  Country: None (occurrence: None)
  Receive Date: 20100721
  Receipt Date: 20080521
  Transmission Date: 20110219
  Serious: Yes (Other)
  Sender: FDA-Public Use
  Company Number: US-PFIZER INC-2008036518

PATIENT
  Sex: Female
  Weight: 61.2 kg

DRUGS (4)
  1. CHANTIX [Suspect]
     Indication: SMOKING CESSATION THERAPY
     Dates: start: 20080321, end: 20080405
  2. BENADRYL [Suspect]
  3. CONTRACEPTIVE, UNSPECIFIED [Concomitant]
  4. LOESTRIN 1.5/30 [Concomitant]

REACTIONS (4)
  - HEADACHE [None]
  - SINUS HEADACHE [None]
  - SOMNOLENCE [None]
  - URTICARIA [None]
